FAERS Safety Report 7098646-8 (Version None)
Quarter: 2010Q4

REPORT INFORMATION
  Report Type: 
  Country: None (occurrence: None)
  Receive Date: 20101112
  Receipt Date: 20101102
  Transmission Date: 20110411
  Serious: Yes (Other)
  Sender: FDA-Public Use
  Company Number: US-SANOFI-AVENTIS-2010SA067392

PATIENT
  Age: 74 Year
  Sex: Male

DRUGS (21)
  1. ENOXAPARIN SODIUM [Suspect]
     Route: 065
     Dates: start: 20090726, end: 20090807
  2. DOCUSATE SODIUM [Concomitant]
     Dates: start: 20090727, end: 20090730
  3. SODIUM CHLORIDE [Concomitant]
     Dates: start: 20090727, end: 20090730
  4. ACETAMINOFEN [Concomitant]
     Dates: start: 20090727, end: 20090727
  5. CLEOCIN [Concomitant]
     Dates: start: 20090727, end: 20090728
  6. METOCLOPRAMIDE [Concomitant]
     Dates: start: 20090727, end: 20090727
  7. OXYCODONE HCL [Concomitant]
     Dates: start: 20090727, end: 20090730
  8. SALINE [Concomitant]
     Dates: start: 20090727, end: 20090727
  9. MORPHINE [Concomitant]
     Dates: start: 20090727, end: 20090730
  10. GLYCOPYRROLATE [Concomitant]
     Dates: start: 20090727, end: 20090727
  11. RINGER [Concomitant]
     Dates: start: 20090727, end: 20090727
  12. ONDANSETRON [Concomitant]
     Dates: start: 20090727, end: 20090727
  13. MILK OF MAGNESIA TAB [Concomitant]
     Dates: start: 20090729, end: 20090731
  14. VICODIN [Concomitant]
     Dates: start: 20090728
  15. LISINOPRIL [Concomitant]
     Dates: start: 20090401
  16. ASPIRIN [Concomitant]
     Dates: start: 20060101, end: 20090717
  17. CHONDROITIN SULFATE/GLUCOSAMINE HYDROCHLORIDE [Concomitant]
     Dates: start: 20050101, end: 20090717
  18. VERSED [Concomitant]
  19. BUPIVACAINE HYDROCHLORIDE/GLUCOSE [Concomitant]
  20. FENTANYL [Concomitant]
  21. DIPRIVAN [Concomitant]

REACTIONS (3)
  - ALANINE AMINOTRANSFERASE INCREASED [None]
  - ASPARTATE AMINOTRANSFERASE INCREASED [None]
  - BLOOD BILIRUBIN INCREASED [None]
